FAERS Safety Report 8518139 (Version 5)
Quarter: 2015Q2

REPORT INFORMATION
  Report Type: Spontaneous
  Country: US (occurrence: US)
  Receive Date: 20120417
  Receipt Date: 20150506
  Transmission Date: 20150821
  Serious: No
  Sender: FDA-Public Use
  Company Number: US-ASTRAZENECA-2012SE01555

PATIENT
  Age: 86 Year
  Sex: Female

DRUGS (3)
  1. NEXIUM [Suspect]
     Active Substance: ESOMEPRAZOLE MAGNESIUM
     Route: 048
  2. ACIPHEX [Concomitant]
     Active Substance: RABEPRAZOLE SODIUM
  3. PREVACID [Concomitant]
     Active Substance: LANSOPRAZOLE

REACTIONS (11)
  - Malaise [Unknown]
  - Cystitis [Unknown]
  - Visual impairment [Unknown]
  - Gastric disorder [Unknown]
  - Hypokinesia [Unknown]
  - Pharyngitis streptococcal [Unknown]
  - Kidney infection [Unknown]
  - Hernia [Unknown]
  - Herpes zoster [Unknown]
  - Nerve injury [Unknown]
  - Off label use [Unknown]
